FAERS Safety Report 24149677 (Version 1)
Quarter: 2024Q3

REPORT INFORMATION
  Report Type: Spontaneous
  Country: GB (occurrence: GB)
  Receive Date: 20240730
  Receipt Date: 20240730
  Transmission Date: 20241016
  Serious: Yes (Hospitalization, Other)
  Sender: NOVO NORDISK
  Company Number: GB-NOVOPROD-1259042

PATIENT
  Age: 25 Year
  Sex: Male

DRUGS (3)
  1. ESPEROCT [Suspect]
     Active Substance: ANTIHEMOPHILIC FACTOR, HUMAN RECOMBINANT
     Indication: Product used for unknown indication
     Dosage: 7 X 1000 UNIT
     Route: 042
     Dates: start: 20240713
  2. ESPEROCT [Suspect]
     Active Substance: ANTIHEMOPHILIC FACTOR, HUMAN RECOMBINANT
     Dosage: 7 X 1000 UNIT
     Route: 042
     Dates: start: 20240715
  3. ESPEROCT [Suspect]
     Active Substance: ANTIHEMOPHILIC FACTOR, HUMAN RECOMBINANT
     Dosage: 7 X 1000 UNIT
     Route: 042
     Dates: start: 20240714

REACTIONS (3)
  - Coagulation factor VIII level decreased [Unknown]
  - Drug effect less than expected [Unknown]
  - Product quality issue [Unknown]
